FAERS Safety Report 15350322 (Version 1)
Quarter: 2018Q3

REPORT INFORMATION
  Report Type: Spontaneous
  Country: GB (occurrence: GB)
  Receive Date: 20180905
  Receipt Date: 20180905
  Transmission Date: 20181010
  Serious: Yes (Other)
  Sender: FDA-Public Use
  Company Number: GB-TEVA-2018-GB-951400

PATIENT
  Age: 35 Year
  Sex: Female
  Weight: 58 kg

DRUGS (19)
  1. FERROUS SULFATE. [Concomitant]
     Active Substance: FERROUS SULFATE
     Dosage: 2 DOSAGE FORMS DAILY;
     Dates: start: 20170714
  2. PARACETAMOL [Concomitant]
     Active Substance: ACETAMINOPHEN
     Dosage: TAKE 1 OR 2 4 TIMES/DAY.
     Dates: start: 20180606, end: 20180616
  3. LEVETIRACETAM. [Concomitant]
     Active Substance: LEVETIRACETAM
     Dosage: 2 DOSAGE FORMS DAILY;
     Dates: start: 20171227
  4. CHLORAMPHENICOL [Concomitant]
     Active Substance: CHLORAMPHENICOL
     Dosage: 3 DOSAGE FORMS DAILY; RIGHT EYE FOR 5 DAYS.
     Route: 050
     Dates: start: 20180302
  5. EPIDUO [Concomitant]
     Active Substance: ADAPALENE\BENZOYL PEROXIDE
     Dosage: 1 DOSAGE FORMS DAILY;
     Dates: start: 20170518
  6. ADAPALENE. [Concomitant]
     Active Substance: ADAPALENE
     Dosage: 1 DOSAGE FORMS DAILY;
     Dates: start: 20161115
  7. SERTRALINE [Concomitant]
     Active Substance: SERTRALINE HYDROCHLORIDE
     Dosage: 1 DOSAGE FORMS DAILY;
     Dates: start: 20180508
  8. DERMOL [Concomitant]
     Active Substance: BENZALKONIUM CHLORIDE\CHLORHEXIDINE HYDROCHLORIDE\ISOPROPYL MYRISTATE\PARAFFIN
     Dosage: USE AS DIRECTED
     Dates: start: 20161115
  9. ISOTRETINOIN. [Concomitant]
     Active Substance: ISOTRETINOIN
     Dosage: 1 DOSAGE FORMS DAILY;
     Dates: start: 20170509
  10. DIHYDROCODEINE [Concomitant]
     Active Substance: DIHYDROCODEINE
     Dosage: EVERY 4?6 HOURS.
     Dates: start: 20180606, end: 20180611
  11. PILOCARPINE HYDROCHLORIDE. [Concomitant]
     Active Substance: PILOCARPINE HYDROCHLORIDE
     Dosage: ONCE OR TWICE A DAY RIGHT EYE
     Route: 050
     Dates: start: 20170531
  12. DIAZEPAM. [Concomitant]
     Active Substance: DIAZEPAM
     Dosage: 3 DOSAGE FORMS DAILY; TAKE ONE THREE TIMES DAILY.
     Dates: start: 20180606, end: 20180611
  13. KETOCONAZOLE. [Concomitant]
     Active Substance: KETOCONAZOLE
     Dosage: USE AS DIRECTED
     Dates: start: 20170223
  14. LYMECYCLINE [Concomitant]
     Active Substance: LYMECYCLINE
     Dosage: USE AS DIRECTED
     Dates: start: 20170518
  15. DALACIN [Concomitant]
     Active Substance: CLINDAMYCIN
     Dosage: 2 DOSAGE FORMS DAILY;
     Dates: start: 20170223
  16. ZONISAMIDE. [Suspect]
     Active Substance: ZONISAMIDE
     Dosage: 100 MILLIGRAM DAILY;
     Dates: start: 20180813
  17. LAMOTRIGINE. [Concomitant]
     Active Substance: LAMOTRIGINE
     Dosage: 2 DOSAGE FORMS DAILY;
     Dates: start: 20180508
  18. CARMELLOSE SODIUM [Concomitant]
     Active Substance: CARBOXYMETHYLCELLULOSE SODIUM
     Dosage: 6 DOSAGE FORMS DAILY; TO RIGHT EYE
     Dates: start: 20180412
  19. CYCLIZINE [Concomitant]
     Active Substance: CYCLIZINE
     Indication: NAUSEA
     Dosage: 3 DOSAGE FORMS DAILY; ONE THREE TIMES DAILY.
     Dates: start: 20180606, end: 20180613

REACTIONS (2)
  - Mental impairment [Recovering/Resolving]
  - Depression [Recovering/Resolving]

NARRATIVE: CASE EVENT DATE: 20180813
